FAERS Safety Report 6669196-5 (Version None)
Quarter: 2010Q2

REPORT INFORMATION
  Report Type: 
  Country: None (occurrence: None)
  Receive Date: 20100406
  Receipt Date: 20100319
  Transmission Date: 20101027
  Serious: No
  Sender: FDA-Public Use
  Company Number: US-B.I. PHARMACEUTICALS,INC./RIDGEFIELD-2010-BP-03323BP

PATIENT
  Age: 1 Year
  Sex: Male

DRUGS (1)
  1. MIRAPEX [Suspect]
     Route: 064

REACTIONS (3)
  - FOOD ALLERGY [None]
  - MALAISE [None]
  - RESPIRATORY SYNCYTIAL VIRUS INFECTION [None]
